FAERS Safety Report 8972591 (Version 1)
Quarter: 2012Q4

REPORT INFORMATION
  Report Type: Report from Study
  Country: US (occurrence: US)
  Receive Date: 20121218
  Receipt Date: 20121218
  Transmission Date: 20130627
  Serious: Yes (Other)
  Sender: FDA-Public Use
  Company Number: US-ROCHE-1166415

PATIENT
  Sex: Male

DRUGS (3)
  1. CAPECITABINE [Suspect]
     Indication: NEOPLASM MALIGNANT
     Route: 065
     Dates: end: 20070210
  2. CAPECITABINE [Suspect]
     Dosage: RESTARTED
     Route: 065
     Dates: start: 20070302, end: 20070505
  3. LASIX [Concomitant]

REACTIONS (5)
  - Bronchitis [Unknown]
  - Diarrhoea [Unknown]
  - Hepatic enzyme increased [Unknown]
  - Jaundice [Unknown]
  - Cardiac failure congestive [Unknown]
